FAERS Safety Report 6355729-5 (Version None)
Quarter: 2009Q3

REPORT INFORMATION
  Report Type: 
  Country: None (occurrence: None)
  Receive Date: 20090910
  Receipt Date: 20090826
  Transmission Date: 20100115
  Serious: Yes (Hospitalization)
  Sender: FDA-Public Use
  Company Number: 2009002590

PATIENT
  Age: 59 Year
  Sex: Female

DRUGS (8)
  1. ERLOTINIB HYDROCHLORIDE [Suspect]
     Indication: LUNG NEOPLASM MALIGNANT
     Dosage: (150 MG,QD),ORAL
     Route: 048
     Dates: start: 20090629, end: 20090723
  2. TAXOTERE [Suspect]
     Indication: LUNG NEOPLASM MALIGNANT
     Dosage: (Q21D),INTRAVENOUS
     Route: 042
     Dates: start: 20090626, end: 20090717
  3. CARVEDILOL [Concomitant]
  4. GRANULOKINE [Concomitant]
  5. ARANESP [Concomitant]
  6. PRILOSEC [Concomitant]
  7. DIORAN [Concomitant]
  8. BISOPROLOL FUMARATE [Concomitant]

REACTIONS (4)
  - ARRHYTHMIA [None]
  - ATRIAL FIBRILLATION [None]
  - CONDITION AGGRAVATED [None]
  - FEBRILE NEUTROPENIA [None]
